FAERS Safety Report 24453601 (Version 2)
Quarter: 2024Q4

REPORT INFORMATION
  Report Type: Report from Study
  Country: US (occurrence: US)
  Receive Date: 20241017
  Receipt Date: 20241018
  Transmission Date: 20250115
  Serious: No
  Sender: ROCHE
  Company Number: US-ROCHE-3331349

PATIENT
  Age: 21 Year
  Sex: Female

DRUGS (2)
  1. RITUXAN [Suspect]
     Active Substance: RITUXIMAB
     Indication: Orbital myositis
     Dosage: INFUSE 1000 MG INTRAVENOUSLY DILUTED IN NS-IV 500 ML OVER 4 HOURS ON DAY 1 EVERY 6 MONTHS.
     Route: 041
     Dates: start: 20221020
  2. RITUXAN [Suspect]
     Active Substance: RITUXIMAB
     Indication: Rheumatoid arthritis

REACTIONS (2)
  - Drug hypersensitivity [Unknown]
  - Off label use [Unknown]

NARRATIVE: CASE EVENT DATE: 20221020
